FAERS Safety Report 18333154 (Version 1)
Quarter: 2020Q4

REPORT INFORMATION
  Report Type: Spontaneous
  Country: NL (occurrence: NL)
  Receive Date: 20201001
  Receipt Date: 20201001
  Transmission Date: 20210113
  Serious: Yes (Death, Life-Threatening, Hospitalization, Other)
  Sender: FDA-Public Use
  Company Number: NL-AUROBINDO-AUR-APL-2020-049678

PATIENT
  Age: 79 Year
  Sex: Female

DRUGS (4)
  1. PARACETAMOL [Interacting]
     Active Substance: ACETAMINOPHEN
     Indication: STAPHYLOCOCCAL INFECTION
  2. FLUCLOXACILLIN [Interacting]
     Active Substance: FLUCLOXACILLIN
     Indication: WOUND INFECTION STAPHYLOCOCCAL
     Dosage: 12 GRAM, ONCE A DAY
     Route: 042
  3. FLUCLOXACILLIN [Interacting]
     Active Substance: FLUCLOXACILLIN
     Indication: STAPHYLOCOCCAL INFECTION
  4. PARACETAMOL [Suspect]
     Active Substance: ACETAMINOPHEN
     Indication: WOUND INFECTION STAPHYLOCOCCAL
     Dosage: 4 GRAM, ONCE A DAY
     Route: 042

REACTIONS (7)
  - Drug interaction [Fatal]
  - Pneumonia aspiration [Fatal]
  - Glutathione synthetase deficiency [Fatal]
  - Pyroglutamic acidosis [Recovering/Resolving]
  - Cardiac failure [Fatal]
  - Metabolic acidosis [Fatal]
  - Urinary tract infection [Fatal]
